FAERS Safety Report 10075771 (Version 1)
Quarter: 2014Q2

REPORT INFORMATION
  Report Type: Report from Study
  Country: CA (occurrence: CA)
  Receive Date: 20140414
  Receipt Date: 20140414
  Transmission Date: 20141212
  Serious: Yes (Other)
  Sender: FDA-Public Use
  Company Number: CA-JNJFOC-20140404796

PATIENT
  Age: 14 Year
  Sex: Male
  Weight: 50.8 kg

DRUGS (9)
  1. REMICADE [Suspect]
     Indication: CROHN^S DISEASE
     Route: 042
     Dates: start: 20140404
  2. REMICADE [Suspect]
     Indication: CROHN^S DISEASE
     Route: 042
     Dates: start: 201403
  3. REMICADE [Suspect]
     Indication: CROHN^S DISEASE
     Route: 042
     Dates: start: 201401
  4. FOLIC ACID [Concomitant]
     Dosage: 6/7 (UNSPECIFIED UNITS)
     Route: 065
  5. MTX [Concomitant]
     Dosage: 6/7 (UNSPECIFIED UNITS)
     Route: 065
  6. VIT D [Concomitant]
     Dosage: 6/7 (UNSPECIFIED UNITS)
     Route: 065
  7. PREVACID [Concomitant]
     Dosage: 6/7 (UNSPECIFIED UNITS)
     Route: 065
  8. TYLENOL [Concomitant]
     Indication: PREMEDICATION
     Route: 048
  9. BENADRYL [Concomitant]
     Indication: PREMEDICATION
     Route: 048

REACTIONS (6)
  - Nausea [Recovered/Resolved]
  - Flushing [Recovered/Resolved]
  - Infusion related reaction [Recovered/Resolved]
  - Pyrexia [Unknown]
  - Crohn^s disease [Unknown]
  - Malaise [Unknown]
